FAERS Safety Report 4918545-4 (Version None)
Quarter: 2006Q1

REPORT INFORMATION
  Report Type: 
  Country: None (occurrence: None)
  Receive Date: 20060222
  Receipt Date: 20050722
  Transmission Date: 20060701
  Serious: Yes (Other)
  Sender: FDA-Public Use
  Company Number: DE-BRISTOL-MYERS SQUIBB COMPANY-13050414

PATIENT
  Age: 21 Year
  Sex: Female

DRUGS (1)
  1. COUMADIN [Suspect]
     Indication: HYPERCOAGULATION

REACTIONS (1)
  - GASTROINTESTINAL DISORDER [None]
